FAERS Safety Report 5255759-0 (Version None)
Quarter: 2007Q1

REPORT INFORMATION
  Report Type: 
  Country: None (occurrence: None)
  Receive Date: 20070301
  Receipt Date: 20070227
  Transmission Date: 20070707
  Serious: Yes (Hospitalization)
  Sender: FDA-Public Use
  Company Number: TCI2007A00856

PATIENT
  Age: 8 Decade
  Sex: Female

DRUGS (1)
  1. LANSOPRAZOLE [Suspect]
     Route: 048

REACTIONS (2)
  - MUSCLE ENZYME INCREASED [None]
  - MYALGIA [None]
